FAERS Safety Report 21656644 (Version 1)
Quarter: 2022Q4

REPORT INFORMATION
  Report Type: Spontaneous
  Country: US (occurrence: None)
  Receive Date: 20221128
  Receipt Date: 20221128
  Transmission Date: 20230113
  Serious: No
  Sender: FDA-Public Use
  Company Number: None

PATIENT
  Sex: 0

DRUGS (2)
  1. DERMA-SMOOTHE/FS [Suspect]
     Active Substance: FLUOCINOLONE ACETONIDE
  2. ACITRETIN [Suspect]
     Active Substance: ACITRETIN

REACTIONS (3)
  - Drug ineffective [None]
  - Liver disorder [None]
  - Condition aggravated [None]
